FAERS Safety Report 7602118-9 (Version None)
Quarter: 2011Q3

REPORT INFORMATION
  Report Type: 
  Country: None (occurrence: None)
  Receive Date: 20110711
  Receipt Date: 20110711
  Transmission Date: 20111222
  Serious: No
  Sender: FDA-Public Use
  Company Number: None

PATIENT
  Sex: Male

DRUGS (2)
  1. POTASSIUM CHLORIDE [Suspect]
     Dosage: 1 PINT
     Dates: start: 20110514, end: 20110708
  2. PHENOBARBITAL [Concomitant]

REACTIONS (2)
  - WRONG DRUG ADMINISTERED [None]
  - DRUG DISPENSING ERROR [None]
